FAERS Safety Report 6175349-5 (Version None)
Quarter: 2009Q2

REPORT INFORMATION
  Report Type: 
  Country: None (occurrence: None)
  Receive Date: 20090429
  Receipt Date: 20090413
  Transmission Date: 20091009
  Serious: Yes (Hospitalization)
  Sender: FDA-Public Use
  Company Number: 1-18099743

PATIENT
  Sex: Female

DRUGS (1)
  1. HYDROCORTISONE 1%-P CREAM [Suspect]
     Dosage: TOPICAL
     Route: 061

REACTIONS (2)
  - EYE DISORDER [None]
  - THROAT TIGHTNESS [None]
